FAERS Safety Report 9791613 (Version 1)
Quarter: 2014Q1

REPORT INFORMATION
  Report Type: Report from Study
  Country: US (occurrence: US)
  Receive Date: 20140102
  Receipt Date: 20140102
  Transmission Date: 20141002
  Serious: Yes (Other)
  Sender: FDA-Public Use
  Company Number: US-ROCHE-1326848

PATIENT
  Age: 82 Year
  Sex: 0

DRUGS (13)
  1. LUCENTIS [Suspect]
     Indication: DIABETIC RETINAL OEDEMA
     Dosage: OS
     Route: 050
     Dates: start: 20091006
  2. LUCENTIS [Suspect]
     Indication: CYSTOID MACULAR OEDEMA
  3. LUCENTIS [Suspect]
     Indication: AGE-RELATED MACULAR DEGENERATION
  4. AVASTIN [Suspect]
     Indication: DIABETIC RETINAL OEDEMA
     Dosage: OU
     Route: 050
     Dates: start: 20060606
  5. PRED FORTE [Concomitant]
     Dosage: OU
     Route: 065
  6. COUMADIN [Concomitant]
  7. AMBIEN [Concomitant]
  8. MOBIC [Concomitant]
  9. METFORMIN [Concomitant]
     Route: 065
  10. TROPICAMIDE [Concomitant]
     Dosage: OS
     Route: 065
  11. BETADINE [Concomitant]
     Dosage: Q5MINS X3
     Route: 065
  12. MACUGEN [Concomitant]
     Dosage: OS
     Route: 065
     Dates: start: 20080529, end: 20080529
  13. TRIAMCINOLONE [Concomitant]
     Dosage: OU
     Route: 050
     Dates: start: 20030717

REACTIONS (12)
  - Macular oedema [Unknown]
  - Visual acuity reduced [Unknown]
  - Local swelling [Unknown]
  - Retinal scar [Unknown]
  - Visual acuity reduced [Unknown]
  - Off label use [Unknown]
  - Retinal haemorrhage [Unknown]
  - Diabetic retinopathy [Unknown]
  - Diabetic retinopathy [Unknown]
  - Diabetic retinopathy [Unknown]
  - Oedema [Unknown]
  - Vision blurred [Unknown]
